FAERS Safety Report 7321743-6 (Version None)
Quarter: 2011Q1

REPORT INFORMATION
  Report Type: 
  Country: None (occurrence: None)
  Receive Date: 20110228
  Receipt Date: 20110218
  Transmission Date: 20110831
  Serious: Yes (Other)
  Sender: FDA-Public Use
  Company Number: US-NAPPMUNDI-USA-2010-0051726

PATIENT
  Sex: Female
  Weight: 68.027 kg

DRUGS (1)
  1. OXYCONTIN [Suspect]
     Indication: PAIN
     Dosage: 80 MG, BID
     Route: 048
     Dates: start: 20031001

REACTIONS (4)
  - HALLUCINATION [None]
  - FORMICATION [None]
  - WRONG TECHNIQUE IN DRUG USAGE PROCESS [None]
  - DELUSION [None]
